FAERS Safety Report 8471063 (Version 7)
Quarter: 2012Q4

REPORT INFORMATION
  Report Type: 
  Country: US (occurrence: US)
  Receive Date: 20120322
  Receipt Date: 20121011
  Transmission Date: 20130627
  Serious: Yes (Hospitalization, Other)
  Sender: FDA-Public Use
  Company Number: US-BAYER-2012-024315

PATIENT
  Age: 48 Year
  Sex: Female
  Weight: 68.03 kg

DRUGS (11)
  1. YAZ [Suspect]
     Indication: PREMENSTRUAL SYNDROME
     Dosage: UNK
     Route: 048
     Dates: start: 200806, end: 200812
  2. PREVACID [Concomitant]
  3. MOBIC [Concomitant]
  4. MORPHINE [Concomitant]
     Indication: DISCOMFORT
     Route: 040
  5. PHENERGAN [Concomitant]
     Indication: NAUSEA
     Dosage: 12.5 mg, UNK
     Route: 040
  6. ANTACIDS, OTHER COMBINATIONS [Concomitant]
  7. MAALOX [Concomitant]
     Dosage: If pain begins to worsen
  8. ANTIMIGRAINE PREPARATIONS [Concomitant]
     Indication: MIGRAINE
  9. VITAMIN C [Concomitant]
  10. NSAID^S [Concomitant]
     Dosage: occasional use
  11. IBUPROFEN [Concomitant]
     Indication: HEADACHE
     Dosage: 200-800

REACTIONS (11)
  - Deep vein thrombosis [Recovered/Resolved]
  - Deep vein thrombosis [None]
  - Emotional distress [None]
  - General physical health deterioration [Recovered/Resolved]
  - Scar [None]
  - Pain [None]
  - Injury [None]
  - Anxiety [None]
  - Anhedonia [None]
  - Joint swelling [Recovered/Resolved]
  - Arthralgia [Recovered/Resolved]
